FAERS Safety Report 11255376 (Version 2)
Quarter: 2015Q3

REPORT INFORMATION
  Report Type: Report from Study
  Country: FR (occurrence: FR)
  Receive Date: 20150709
  Receipt Date: 20150731
  Transmission Date: 20151125
  Serious: Yes (Hospitalization)
  Sender: FDA-Public Use
  Company Number: FR-GLAXOSMITHKLINE-FR2015GSK097539

PATIENT
  Age: 61 Year
  Sex: Male

DRUGS (10)
  1. PLAVIX [Concomitant]
     Active Substance: CLOPIDOGREL BISULFATE
  2. PULMICORT TURBUHALER [Concomitant]
     Active Substance: BUDESONIDE
  3. INIPOMP [Concomitant]
     Active Substance: PANTOPRAZOLE SODIUM
  4. CORVASAL NOS [Concomitant]
  5. COVERSYL [Concomitant]
     Active Substance: PERINDOPRIL
  6. CARDENSIEL [Concomitant]
     Active Substance: BISOPROLOL FUMARATE
  7. OMEGA-3-ACID ETHYL ESTERS. [Suspect]
     Active Substance: OMEGA-3-ACID ETHYL ESTERS
     Indication: ISCHAEMIC HEART DISEASE PROPHYLAXIS
     Dosage: UNK
     Route: 048
     Dates: start: 20080829
  8. OMEGA-3-ACID ETHYL ESTERS. [Suspect]
     Active Substance: OMEGA-3-ACID ETHYL ESTERS
     Dosage: UNK
     Dates: start: 20090520
  9. TAHOR [Concomitant]
     Active Substance: ATORVASTATIN CALCIUM
  10. TEMERIT [Concomitant]
     Active Substance: NEBIVOLOL

REACTIONS (3)
  - Pyrexia [Unknown]
  - Chest pain [Unknown]
  - Peripheral venous disease [Unknown]

NARRATIVE: CASE EVENT DATE: 201003
